FAERS Safety Report 4577596-2 (Version None)
Quarter: 2005Q1

REPORT INFORMATION
  Report Type: 
  Country: None (occurrence: None)
  Receive Date: 20050127
  Receipt Date: 20041007
  Transmission Date: 20050727
  Serious: No
  Sender: FDA-Public Use
  Company Number: US_0410107145

PATIENT
  Age: 56 Year
  Sex: Male

DRUGS (5)
  1. STRATTERA [Suspect]
     Indication: AMNESIA
     Dosage: 76 MG DAY
     Dates: start: 20041001
  2. METOPROLOL [Concomitant]
  3. CELEXA [Concomitant]
  4. ZOCOR (SIMVASTATIN  RATIOPHARM) [Concomitant]
  5. FOLIC ACID [Concomitant]

REACTIONS (2)
  - TESTICULAR PAIN [None]
  - URINARY HESITATION [None]
